FAERS Safety Report 9414708 (Version 1)
Quarter: 2013Q3

REPORT INFORMATION
  Report Type: Spontaneous
  Country: DK (occurrence: DK)
  Receive Date: 20130723
  Receipt Date: 20130723
  Transmission Date: 20140515
  Serious: Yes (Hospitalization)
  Sender: FDA-Public Use
  Company Number: PHHY2013DK076913

PATIENT
  Age: 70 Year
  Sex: Female

DRUGS (2)
  1. ACLASTA [Suspect]
     Indication: OSTEOPOROSIS
     Dosage: 5MG/100ML
     Route: 042
     Dates: start: 2009
  2. ACLASTA [Suspect]
     Dosage: 5MG/100ML
     Route: 042
     Dates: start: 2012

REACTIONS (1)
  - Osteonecrosis of jaw [Recovered/Resolved]
